FAERS Safety Report 24043589 (Version 1)
Quarter: 2024Q3

REPORT INFORMATION
  Report Type: Spontaneous
  Country: ES (occurrence: ES)
  Receive Date: 20240703
  Receipt Date: 20240703
  Transmission Date: 20241016
  Serious: Yes (Death, Life-Threatening, Hospitalization, Other)
  Sender: Haleon PLC
  Company Number: ES-EMA-DD-20180404-aksevhumanp-122915

PATIENT
  Age: 81 Year
  Sex: Female

DRUGS (6)
  1. ACETAMINOPHEN [Suspect]
     Active Substance: ACETAMINOPHEN
     Indication: Injury
  2. MEROPENEM [Suspect]
     Active Substance: MEROPENEM
     Indication: Antibiotic therapy
  3. LINEZOLID [Suspect]
     Active Substance: LINEZOLID
     Indication: Antibiotic therapy
  4. FUROSEMIDE [Suspect]
     Active Substance: FUROSEMIDE
     Indication: Antibiotic therapy
  5. METAMIZOLE [Suspect]
     Active Substance: METAMIZOLE
     Indication: Product used for unknown indication
  6. PIPERACILLIN SODIUM\TAZOBACTAM SODIUM [Suspect]
     Active Substance: PIPERACILLIN SODIUM\TAZOBACTAM SODIUM
     Indication: Antibiotic therapy

REACTIONS (12)
  - Febrile neutropenia [Fatal]
  - Dysuria [Fatal]
  - Acute respiratory failure [Fatal]
  - Respiratory tract infection [Fatal]
  - Cardiac failure [Fatal]
  - Acute kidney injury [Unknown]
  - Female genital tract fistula [Fatal]
  - Pneumonia [Fatal]
  - Dyspnoea [Fatal]
  - Urosepsis [Fatal]
  - Thrombocytopenia [Fatal]
  - Chills [Fatal]
